FAERS Safety Report 10444803 (Version 2)
Quarter: 2015Q1

REPORT INFORMATION
  Report Type: Spontaneous
  Country: US (occurrence: US)
  Receive Date: 20140910
  Receipt Date: 20150311
  Transmission Date: 20150720
  Serious: Yes (Death)
  Sender: FDA-Public Use
  Company Number: US-PFIZER INC-2014248617

PATIENT
  Age: 84 Year
  Sex: Male

DRUGS (1)
  1. XALKORI [Suspect]
     Active Substance: CRIZOTINIB
     Indication: LUNG NEOPLASM MALIGNANT
     Dosage: 250 MG, DAILY
     Dates: start: 201405, end: 20140802

REACTIONS (2)
  - Haemoptysis [Fatal]
  - Haemorrhage [Fatal]

NARRATIVE: CASE EVENT DATE: 20140813
